FAERS Safety Report 5209583-5 (Version None)
Quarter: 2007Q1

REPORT INFORMATION
  Report Type: 
  Country: None (occurrence: None)
  Receive Date: 20070116
  Receipt Date: 20070104
  Transmission Date: 20070707
  Serious: Yes (Other)
  Sender: FDA-Public Use
  Company Number: US-PFIZER INC-2007001875

PATIENT
  Sex: Female

DRUGS (1)
  1. CABERGOLINE [Suspect]

REACTIONS (5)
  - DIZZINESS [None]
  - DYSSTASIA [None]
  - HEADACHE [None]
  - NAUSEA [None]
  - VISUAL ACUITY REDUCED [None]
